FAERS Safety Report 8883947 (Version 1)
Quarter: 2012Q4

REPORT INFORMATION
  Report Type: 
  Country: CH (occurrence: CH)
  Receive Date: 20121102
  Receipt Date: 20121102
  Transmission Date: 20130627
  Serious: Yes (Other)
  Sender: FDA-Public Use
  Company Number: CH-SANOFI-AVENTIS-2012SA078154

PATIENT
  Age: 86 Year
  Sex: Female
  Weight: 67.1 kg

DRUGS (10)
  1. ZOLPIDEM [Suspect]
     Indication: DRUG USE FOR UNKNOWN INDICATION
     Dosage: at bedtime + one as a backup
     Route: 048
  2. ANAFRANIL [Interacting]
     Indication: DRUG USE FOR UNKNOWN INDICATION
     Dosage: in morning
     Route: 048
  3. ANAFRANIL [Interacting]
     Indication: DRUG USE FOR UNKNOWN INDICATION
     Dosage: at midday
     Route: 048
  4. ALENDRONATE [Suspect]
     Indication: DRUG USE FOR UNKNOWN INDICATION
     Route: 048
  5. CALCIUM CARBONATE [Concomitant]
     Dosage: duration: long term
  6. GUTRON [Concomitant]
     Dosage: duration: long term
  7. ASPIRIN CARDIO [Concomitant]
     Dosage: duration: long term
  8. MORPHINE [Concomitant]
     Indication: PAIN
     Dosage: frequency: 6 per 1 day
     Route: 048
     Dates: start: 20120531, end: 20120602
  9. DAFALGAN [Concomitant]
     Dates: start: 20120602
  10. DENOSUMAB [Concomitant]
     Dosage: frequency: 1 per 6 month
     Dates: start: 20120704

REACTIONS (6)
  - Pelvic fracture [Recovering/Resolving]
  - Upper limb fracture [Recovering/Resolving]
  - Fall [Recovered/Resolved]
  - Drug ineffective [Unknown]
  - Clavicle fracture [None]
  - Osteoporotic fracture [None]
